FAERS Safety Report 21928151 (Version 6)
Quarter: 2023Q4

REPORT INFORMATION
  Report Type: Other
  Country: CA (occurrence: None)
  Receive Date: 20230130
  Receipt Date: 20231120
  Transmission Date: 20240110
  Serious: Yes (Other)
  Sender: FDA-Public Use
  Company Number: CA-ROCHE-3270060

PATIENT
  Age: 41 Year
  Sex: Female

DRUGS (1)
  1. OCREVUS [Suspect]
     Active Substance: OCRELIZUMAB
     Indication: Relapsing-remitting multiple sclerosis
     Dosage: 300 MG AT DAY 0 AND 14, THEN 600 MG EVERY 6 MONTH
     Route: 042
     Dates: start: 20201111

REACTIONS (12)
  - Salivary gland calculus [Not Recovered/Not Resolved]
  - Sialoadenitis [Unknown]
  - COVID-19 [Recovered/Resolved]
  - Localised infection [Recovered/Resolved]
  - Oral infection [Recovered/Resolved]
  - Fatigue [Unknown]
  - Rhinorrhoea [Not Recovered/Not Resolved]
  - Nasal congestion [Not Recovered/Not Resolved]
  - Wound complication [Not Recovered/Not Resolved]
  - Swelling [Recovering/Resolving]
  - Neck pain [Not Recovered/Not Resolved]
  - Erythema [Not Recovered/Not Resolved]

NARRATIVE: CASE EVENT DATE: 20220401
